FAERS Safety Report 15169117 (Version 1)
Quarter: 2018Q3

REPORT INFORMATION
  Report Type: Spontaneous
  Country: GB (occurrence: GB)
  Receive Date: 20180720
  Receipt Date: 20180720
  Transmission Date: 20181010
  Serious: Yes (Other)
  Sender: FDA-Public Use
  Company Number: GB-SUN PHARMACEUTICAL INDUSTRIES LTD-2018R1-172324

PATIENT
  Age: 9 Year
  Sex: Female
  Weight: 27 kg

DRUGS (2)
  1. CLARITHROMYCIN 250MG/5ML ORAL SUSPENSION [Suspect]
     Active Substance: CLARITHROMYCIN
     Indication: TONSILLITIS
     Dosage: UNK
     Route: 048
     Dates: start: 20180403, end: 20180403
  2. CLARITHROMYCIN 125MG/5ML  ORAL SUSPENSION [Suspect]
     Active Substance: CLARITHROMYCIN
     Indication: PRODUCT USED FOR UNKNOWN INDICATION
     Dosage: 15 ML DAILY, 125MG/5ML
     Route: 048
     Dates: start: 20180207

REACTIONS (2)
  - Urticaria [Recovered/Resolved]
  - Pharyngeal erythema [Unknown]

NARRATIVE: CASE EVENT DATE: 20180403
